FAERS Safety Report 5025512-1 (Version None)
Quarter: 2006Q2

REPORT INFORMATION
  Report Type: 
  Country: None (occurrence: None)
  Receive Date: 20060607
  Receipt Date: 20060522
  Transmission Date: 20061013
  Serious: Yes (Hospitalization)
  Sender: FDA-Public Use
  Company Number: 2006EU001655

PATIENT
  Age: 65 Year
  Sex: Male

DRUGS (3)
  1. FK506              (TACROLIMUS) [Suspect]
     Indication: RENAL TRANSPLANT
     Dosage: 8 MG, BID, ORAL
     Route: 048
     Dates: start: 20040624
  2. MYCHOPHENOLATE MOFETIL (MYCOPHENOLATE MOFETIL) [Suspect]
     Indication: RENAL TRANSPLANT
     Dosage: 500 MG, BID, ORAL
     Route: 048
     Dates: start: 20040624
  3. PREDNISOLONE [Suspect]
     Indication: RENAL TRANSPLANT
     Dosage: ORAL
     Route: 048
     Dates: start: 20040623

REACTIONS (1)
  - LYMPHOCELE [None]
